FAERS Safety Report 7404810-8 (Version None)
Quarter: 2011Q2

REPORT INFORMATION
  Report Type: 
  Country: None (occurrence: None)
  Receive Date: 20110411
  Receipt Date: 20110315
  Transmission Date: 20111010
  Serious: Yes (Hospitalization, Other)
  Sender: FDA-Public Use
  Company Number: US-BAYER-201029790NA

PATIENT
  Age: 51 Year
  Sex: Female
  Weight: 72.562 kg

DRUGS (3)
  1. YASMIN [Suspect]
     Dosage: UNK UNK, UNK
     Route: 048
     Dates: start: 20040101, end: 20050301
  2. ACETAMINOPHEN W/ CODEINE [Concomitant]
  3. PRILOSEC [Concomitant]

REACTIONS (2)
  - DEEP VEIN THROMBOSIS [None]
  - PULMONARY EMBOLISM [None]
